FAERS Safety Report 8713335 (Version 4)
Quarter: 2013Q2

REPORT INFORMATION
  Report Type: Spontaneous
  Country: CA (occurrence: CA)
  Receive Date: 20120808
  Receipt Date: 20130405
  Transmission Date: 20140414
  Serious: Yes (Hospitalization, Other)
  Sender: FDA-Public Use
  Company Number: CA-ABBOTT-04P-028-0283048-00

PATIENT
  Age: 5 Year
  Sex: Female

DRUGS (4)
  1. VALPROATE SODIUM [Suspect]
     Indication: EPILEPSY
     Route: 048
     Dates: start: 2000
  2. VALPROATE SODIUM [Suspect]
     Indication: EPILEPSY
     Route: 048
     Dates: start: 2000
  3. VALPROATE SODIUM [Suspect]
     Indication: CONVULSION PROPHYLAXIS
  4. BENZODIAZEPINE DERIVATIVES [Concomitant]
     Indication: PRODUCT USED FOR UNKNOWN INDICATION

REACTIONS (3)
  - Diabetes mellitus [Unknown]
  - Pancreatitis [Recovered/Resolved]
  - Xanthoma [Recovered/Resolved]
